FAERS Safety Report 10214056 (Version 1)
Quarter: 2014Q2

REPORT INFORMATION
  Report Type: Spontaneous
  Country: IT (occurrence: IT)
  Receive Date: 20140603
  Receipt Date: 20140603
  Transmission Date: 20141212
  Serious: Yes (Other)
  Sender: FDA-Public Use
  Company Number: IT-PFIZER INC-2014148418

PATIENT
  Age: 51 Year
  Sex: Female
  Weight: 54 kg

DRUGS (2)
  1. LYRICA [Suspect]
     Dosage: 15 DF, UNK
  2. JURNISTA [Suspect]
     Dosage: 30 DF, UNK

REACTIONS (3)
  - Overdose [Unknown]
  - Self injurious behaviour [Unknown]
  - Drug abuse [Unknown]
